FAERS Safety Report 9517541 (Version 1)
Quarter: 2013Q3

REPORT INFORMATION
  Report Type: Spontaneous
  Country: GB (occurrence: GB)
  Receive Date: 20130911
  Receipt Date: 20130911
  Transmission Date: 20140515
  Serious: Yes (Hospitalization, Other)
  Sender: FDA-Public Use
  Company Number: GB-009507513-1309GBR002444

PATIENT
  Age: 57 Year
  Sex: Male
  Weight: 88 kg

DRUGS (7)
  1. RALTEGRAVIR POTASSIUM [Suspect]
     Dosage: 400 MG, BID
     Route: 048
     Dates: start: 20130107, end: 20130208
  2. BENDROFLUMETHIAZIDE [Concomitant]
  3. SULFAMETHOXAZOLE (+) TRIMETHOPRIM [Concomitant]
  4. GLICLAZIDE [Concomitant]
  5. KIVEXA [Concomitant]
  6. LISINOPRIL [Concomitant]
     Route: 048
  7. METFORMIN [Concomitant]

REACTIONS (12)
  - Feeling cold [Recovered/Resolved]
  - Liver function test abnormal [Recovering/Resolving]
  - Decreased appetite [Recovered/Resolved]
  - Body temperature fluctuation [Unknown]
  - Condition aggravated [Unknown]
  - Drug reaction with eosinophilia and systemic symptoms [Unknown]
  - Flank pain [Recovered/Resolved]
  - Rash pruritic [Recovered/Resolved]
  - Malaise [Recovered/Resolved]
  - Vomiting [Recovered/Resolved]
  - Urticaria [Recovered/Resolved]
  - Weight decreased [Unknown]
